FAERS Safety Report 17075309 (Version 1)
Quarter: 2019Q4

REPORT INFORMATION
  Report Type: Report from Study
  Country: DE (occurrence: DE)
  Receive Date: 20191126
  Receipt Date: 20191126
  Transmission Date: 20200122
  Serious: Yes (Other)
  Sender: FDA-Public Use
  Company Number: DE-TEVA-2019-DE-1135523

PATIENT
  Sex: Male
  Weight: 81 kg

DRUGS (1)
  1. COPAXONE [Suspect]
     Active Substance: GLATIRAMER ACETATE
     Indication: MULTIPLE SCLEROSIS
     Dates: start: 20151107

REACTIONS (5)
  - Metastases to spine [Not Recovered/Not Resolved]
  - Breast cancer male [Not Recovered/Not Resolved]
  - Breast disorder male [Unknown]
  - Fall [Unknown]
  - Metastases to lymph nodes [Not Recovered/Not Resolved]

NARRATIVE: CASE EVENT DATE: 2019
